FAERS Safety Report 10009802 (Version 1)
Quarter: 2014Q1

REPORT INFORMATION
  Report Type: Spontaneous
  Country: US (occurrence: US)
  Receive Date: 20140312
  Receipt Date: 20140312
  Transmission Date: 20141002
  Serious: No
  Sender: FDA-Public Use
  Company Number: US-INCYTE CORPORATION-2013IN000048

PATIENT
  Age: 67 Year
  Sex: Male

DRUGS (8)
  1. JAKAFI [Suspect]
     Indication: MYELOFIBROSIS
     Dosage: 20 MG, BID
     Route: 048
     Dates: start: 201208
  2. HYDROXYUREA [Concomitant]
  3. VITAMINS [Concomitant]
  4. COQ10 [Concomitant]
  5. FISH OIL [Concomitant]
  6. VITAMIN D3 [Concomitant]
  7. ASPIRIN [Concomitant]
  8. ALEVE [Concomitant]

REACTIONS (5)
  - Cardiac murmur [Unknown]
  - Dyspnoea [Unknown]
  - Arthritis [Unknown]
  - Back pain [Unknown]
  - Neck pain [Unknown]
